FAERS Safety Report 4698378-7 (Version None)
Quarter: 2005Q2

REPORT INFORMATION
  Report Type: 
  Country: None (occurrence: None)
  Receive Date: 20050621
  Receipt Date: 20050608
  Transmission Date: 20051028
  Serious: Yes (Life-Threatening, Hospitalization, Other)
  Sender: FDA-Public Use
  Company Number: 2005061864

PATIENT
  Sex: Male

DRUGS (7)
  1. BEXTRA [Suspect]
     Indication: ILL-DEFINED DISORDER
     Dosage: 60 MG (20 MG, 3 IN 1 D) ORAL
     Route: 048
     Dates: start: 20041109
  2. THIAMINE [Concomitant]
  3. MULTIVITE SIX (ASCORBIC ACID, COLECALCIFEROL, ERGOCALCIFEROL, NICOTINA [Concomitant]
  4. LOSEC (OMEPRAZOLE) [Concomitant]
  5. SIMVASTATIN [Concomitant]
  6. DOXEPIN HCL [Concomitant]
  7. DITROPAN [Concomitant]

REACTIONS (5)
  - CEREBRAL ISCHAEMIA [None]
  - CEREBROVASCULAR ACCIDENT [None]
  - DROOLING [None]
  - GAIT DISTURBANCE [None]
  - LOSS OF CONSCIOUSNESS [None]
